FAERS Safety Report 21571447 (Version 1)
Quarter: 2022Q4

REPORT INFORMATION
  Report Type: Spontaneous
  Country: FR (occurrence: FR)
  Receive Date: 20221109
  Receipt Date: 20221109
  Transmission Date: 20230113
  Serious: Yes (Life-Threatening, Other)
  Sender: FDA-Public Use
  Company Number: None

PATIENT

DRUGS (2)
  1. PROPRANOLOL [Suspect]
     Active Substance: PROPRANOLOL HYDROCHLORIDE
     Indication: Product used for unknown indication
     Dosage: 20 DF
     Route: 048
     Dates: start: 20221009
  2. XARELTO [Suspect]
     Active Substance: RIVAROXABAN
     Indication: Product used for unknown indication
     Dosage: 28 DF
     Route: 048
     Dates: start: 20221009

REACTIONS (4)
  - Prothrombin time ratio decreased [Recovering/Resolving]
  - Intentional overdose [Recovered/Resolved]
  - Suicide attempt [Unknown]
  - Product use issue [Unknown]

NARRATIVE: CASE EVENT DATE: 20221009
